FAERS Safety Report 23706274 (Version 1)
Quarter: 2024Q2

REPORT INFORMATION
  Report Type: Spontaneous
  Country: CN (occurrence: CN)
  Receive Date: 20240404
  Receipt Date: 20240404
  Transmission Date: 20240716
  Serious: Yes (Hospitalization)
  Sender: FDA-Public Use
  Company Number: CN-002147023-NVSC2024CN070927

PATIENT
  Age: 53 Year
  Sex: Female
  Weight: 70 kg

DRUGS (2)
  1. TAFINLAR [Suspect]
     Active Substance: DABRAFENIB MESYLATE
     Indication: Lung neoplasm malignant
     Dosage: 75 MG, BID
     Route: 048
     Dates: start: 20240228, end: 20240304
  2. MEKINIST [Concomitant]
     Active Substance: TRAMETINIB DIMETHYL SULFOXIDE
     Indication: Lung neoplasm malignant
     Dosage: 1 MG, QD
     Route: 048
     Dates: start: 20240228, end: 20240304

REACTIONS (3)
  - Pyrexia [Unknown]
  - Chills [Unknown]
  - Night sweats [Unknown]

NARRATIVE: CASE EVENT DATE: 20240304
